FAERS Safety Report 18752262 (Version 1)
Quarter: 2021Q1

REPORT INFORMATION
  Report Type: Spontaneous
  Country: US (occurrence: US)
  Receive Date: 20210118
  Receipt Date: 20210118
  Transmission Date: 20210419
  Serious: No
  Sender: FDA-Public Use
  Company Number: US-FOUNDATIONCONSUMERHC-2020-US-022684

PATIENT
  Age: 17 Year
  Sex: Female
  Weight: 56.7 kg

DRUGS (2)
  1. SMOKES MARIJUANA [Concomitant]
     Dosage: OCCASIONALLY
  2. PLAN B ONE?STEP [Suspect]
     Active Substance: LEVONORGESTREL
     Indication: POST COITAL CONTRACEPTION
     Dosage: 1.5MG AS A SINGLE DOSE WITH WATER
     Route: 048
     Dates: start: 20201030, end: 20201030

REACTIONS (2)
  - Dysmenorrhoea [Not Recovered/Not Resolved]
  - Vaginal haemorrhage [Not Recovered/Not Resolved]

NARRATIVE: CASE EVENT DATE: 20201102
